FAERS Safety Report 20063789 (Version 1)
Quarter: 2021Q4

REPORT INFORMATION
  Report Type: Other
  Country: CZ (occurrence: None)
  Receive Date: 20211112
  Receipt Date: 20211112
  Transmission Date: 20220303
  Serious: Yes (Other)
  Sender: FDA-Public Use
  Company Number: CZ-Merck Healthcare KGaA-9278615

PATIENT
  Age: 73 Year
  Sex: Female
  Weight: 98 kg

DRUGS (18)
  1. GLUCOPHAGE XR [Suspect]
     Active Substance: METFORMIN HYDROCHLORIDE
     Indication: Diabetes mellitus
     Dates: start: 2018, end: 202001
  2. GLUCOPHAGE XR [Suspect]
     Active Substance: METFORMIN HYDROCHLORIDE
     Dosage: 0-0-1
  3. INSULIN GLARGINE\LIXISENATIDE [Concomitant]
     Active Substance: INSULIN GLARGINE\LIXISENATIDE
     Indication: Diabetes mellitus
     Dosage: (SULIQUA 100 U / ML + 33 UG / ML) AT A DOSE OF 40 UNITS
     Dates: start: 201809, end: 201812
  4. INSULIN GLARGINE\LIXISENATIDE [Concomitant]
     Active Substance: INSULIN GLARGINE\LIXISENATIDE
     Dosage: SULIQUA AT 100 U / ML + 33 UG / ML AT A DOSE OF 50 UNITS
     Dates: start: 201812, end: 202001
  5. INSULIN GLARGINE\LIXISENATIDE [Concomitant]
     Active Substance: INSULIN GLARGINE\LIXISENATIDE
     Dosage: 50 UNITS
     Dates: start: 202003
  6. INSULIN GLARGINE\LIXISENATIDE [Concomitant]
     Active Substance: INSULIN GLARGINE\LIXISENATIDE
     Dosage: 56 UNITS
  7. COMIRNATY [Concomitant]
     Active Substance: TOZINAMERAN
     Indication: COVID-19 immunisation
     Dates: start: 202106
  8. ATORVASTATIN [Concomitant]
     Active Substance: ATORVASTATIN
     Indication: Product used for unknown indication
     Dosage: 0-0-1
  9. ROSUVASTATIN [Concomitant]
     Active Substance: ROSUVASTATIN
     Indication: Product used for unknown indication
  10. PERINDOPRIL [Concomitant]
     Active Substance: PERINDOPRIL
     Indication: Product used for unknown indication
     Dosage: 1-0-0
  11. FUROSEMIDE [Concomitant]
     Active Substance: FUROSEMIDE
     Indication: Product used for unknown indication
     Dosage: 1/2-0-0
  12. FUROSEMIDE [Concomitant]
     Active Substance: FUROSEMIDE
     Dosage: 1-0-0
  13. GORDIUS [Concomitant]
     Indication: Product used for unknown indication
     Dosage: 1-0-1
  14. GORDIUS [Concomitant]
  15. TRAZODONE HYDROCHLORIDE [Concomitant]
     Active Substance: TRAZODONE HYDROCHLORIDE
     Indication: Product used for unknown indication
  16. INSULIN GLARGINE [Concomitant]
     Active Substance: INSULIN GLARGINE
     Indication: Product used for unknown indication
     Dosage: 100 U / ML
  17. INSULIN ASPART [Concomitant]
     Active Substance: INSULIN ASPART
     Dosage: 35-25-25 UNITS
     Dates: start: 2018, end: 201809
  18. INSULIN ASPART [Concomitant]
     Active Substance: INSULIN ASPART
     Dosage: PREMIXED NOVOMIX INSULIN AT A DOSE OF 18-0-8 U S.C
     Route: 058

REACTIONS (5)
  - Seizure [Unknown]
  - Constipation [Recovered/Resolved]
  - Diarrhoea [Recovered/Resolved]
  - Abdominal pain lower [Recovered/Resolved]
  - Therapeutic product effect incomplete [Unknown]
